FAERS Safety Report 23439021 (Version 3)
Quarter: 2024Q1

REPORT INFORMATION
  Report Type: Report from Study
  Country: US (occurrence: US)
  Receive Date: 20240124
  Receipt Date: 20240311
  Transmission Date: 20240410
  Serious: Yes (Other)
  Sender: FDA-Public Use
  Company Number: US-ACADIA PHARMACEUTICALS INC.-ACA-2023-TRF-006117

PATIENT
  Age: 26 Year
  Sex: Female

DRUGS (23)
  1. DAYBUE [Suspect]
     Active Substance: TROFINETIDE
     Indication: Rett syndrome
     Dosage: 50 MILLILITER, BID
     Dates: start: 20231211
  2. DAYBUE [Suspect]
     Active Substance: TROFINETIDE
     Dosage: 50 MILLILITER, BID
  3. ZINC OXIDE [Concomitant]
     Active Substance: ZINC OXIDE
  4. OMEPRAZOLE [Concomitant]
     Active Substance: OMEPRAZOLE
     Dosage: 20 MG , ORAL DAILY
  5. OLOPATADINE [Concomitant]
     Active Substance: OLOPATADINE
     Dosage: 1 DROP, EYE BOTH, DAILY, PRN ALLERGY SYMPTOMS
  6. MEDICAL FOOD [Concomitant]
     Active Substance: MEDICAL FOOD
     Dosage: 1 EA ORAL
  7. CARBIDOPA LEVODOPA [Concomitant]
     Active Substance: CARBIDOPA\LEVODOPA
     Dosage: 10-100 MG, GASTROSTOMY TUBE
  8. LEVETIRACETAM [Concomitant]
     Active Substance: LEVETIRACETAM
     Dosage: 15 ML, ORAL, BID, 15 ML VIA G TUBE TWICE DAILY
  9. LOPERAMIDE OXIDE [Concomitant]
     Active Substance: LOPERAMIDE OXIDE
     Indication: Diarrhoea
     Dosage: 15 ML, ORAL, TID
  10. LOPERAMIDE OXIDE [Concomitant]
     Active Substance: LOPERAMIDE OXIDE
     Dosage: 50 MILLILITER, BID
  11. ALBUTEROL [Concomitant]
     Active Substance: ALBUTEROL
     Dosage: 2 PUFFS INHALE EVERY 6 HRS
  12. ALBUTEROL [Concomitant]
     Active Substance: ALBUTEROL
     Dosage: 3 ML, INHALE, EVERY 6 HOUR, PRN WHEEZING
  13. ONABOTULINUMTOXINA [Concomitant]
     Active Substance: ONABOTULINUMTOXINA
     Dosage: 260 UNITS, INTRAMUSCULAR EVERY 6 HOUR
  14. SODIUM CHLORIDE [Concomitant]
     Active Substance: SODIUM CHLORIDE
     Dosage: 5 ML, ORAL, DAILY
  15. CETIRIZINE HYDROCHLORIDE [Concomitant]
     Active Substance: CETIRIZINE HYDROCHLORIDE
     Dosage: 5 ML, ORAL,DAILY
  16. PEPTAMEN JUNIOR 1.5 [Concomitant]
     Dosage: 1.5 UNFLAVRD LIQUID
  17. ZONISAMIDE [Concomitant]
     Active Substance: ZONISAMIDE
     Dosage: 2 CAPSULE VIA GTUBE WITH FLUSH TWICE
  18. CLOBAZAM [Concomitant]
     Active Substance: CLOBAZAM
     Dosage: SUSPENSION,, 2.5 ML TWICE A DAY PER HER G TUBE
  19. ELECTROLYTES NOS [Concomitant]
     Active Substance: ELECTROLYTES NOS
     Indication: Tachycardia
     Dosage: 200 ML PRN FOR DEHYDRATION SYMTOMS
  20. BACLOFEN [Concomitant]
     Active Substance: BACLOFEN
     Dosage: 40 ML BACLFEN PUMP REFILLED
  21. POLYETHYLENE GLYCOL 3350 [Concomitant]
     Active Substance: POLYETHYLENE GLYCOL 3350
     Dosage: DISSOLVE AND DRINK 1 CAPFUL OF POWDER IN 4 TO 8 ONCES OF LIQUID ONCE DAILY MON-WED-FRI
  22. DIAZEPAM [Concomitant]
     Active Substance: DIAZEPAM
  23. RIMABOTULINUMTOXINB [Concomitant]
     Active Substance: RIMABOTULINUMTOXINB

REACTIONS (12)
  - Epilepsy [Unknown]
  - Product dose omission issue [Unknown]
  - Menstruation irregular [Not Recovered/Not Resolved]
  - Skin maceration [Not Recovered/Not Resolved]
  - COVID-19 [Recovered/Resolved]
  - Tachycardia [Recovered/Resolved]
  - Discomfort [Not Recovered/Not Resolved]
  - Muscle spasms [Not Recovered/Not Resolved]
  - Anxiety [Not Recovered/Not Resolved]
  - Pyrexia [Not Recovered/Not Resolved]
  - Diarrhoea [Not Recovered/Not Resolved]
  - Diarrhoea [Not Recovered/Not Resolved]

NARRATIVE: CASE EVENT DATE: 20231212
